FAERS Safety Report 14919884 (Version 1)
Quarter: 2018Q2

REPORT INFORMATION
  Report Type: Spontaneous
  Country: US (occurrence: US)
  Receive Date: 20180521
  Receipt Date: 20180521
  Transmission Date: 20180711
  Serious: No
  Sender: FDA-Public Use
  Company Number: US-MYLANLABS-2018M1026117

PATIENT
  Sex: Male
  Weight: 100 kg

DRUGS (1)
  1. TRIAMCINOLONE [Suspect]
     Active Substance: TRIAMCINOLONE
     Indication: RASH PRURITIC
     Route: 061

REACTIONS (1)
  - Drug ineffective [Not Recovered/Not Resolved]
